FAERS Safety Report 21327321 (Version 2)
Quarter: 2022Q4

REPORT INFORMATION
  Report Type: Spontaneous
  Country: US (occurrence: US)
  Receive Date: 20220913
  Receipt Date: 20221119
  Transmission Date: 20230113
  Serious: No
  Sender: FDA-Public Use
  Company Number: US-GSKCCFUS-Case-01491872_AE-85033

PATIENT
  Age: 49 Year
  Sex: Female

DRUGS (1)
  1. BENLYSTA [Suspect]
     Active Substance: BELIMUMAB
     Indication: Systemic lupus erythematosus
     Dosage: 200 MG/ML, WE
     Route: 058
     Dates: start: 2021

REACTIONS (2)
  - Product dose omission issue [Unknown]
  - Product complaint [Unknown]

NARRATIVE: CASE EVENT DATE: 20220906
